FAERS Safety Report 19635890 (Version 1)
Quarter: 2021Q3

REPORT INFORMATION
  Report Type: Spontaneous
  Country: AU (occurrence: AU)
  Receive Date: 20210730
  Receipt Date: 20210730
  Transmission Date: 20211014
  Serious: Yes (Other)
  Sender: FDA-Public Use
  Company Number: NVSC2021AU164716

PATIENT
  Age: 51 Year
  Sex: Male

DRUGS (5)
  1. PREDNISONE. [Suspect]
     Active Substance: PREDNISONE
     Indication: CHRONIC GRAFT VERSUS HOST DISEASE
     Dosage: UNK
     Route: 065
  2. CYCLOSPORINE. [Suspect]
     Active Substance: CYCLOSPORINE
     Indication: CHRONIC GRAFT VERSUS HOST DISEASE
     Dosage: UNK
     Route: 065
  3. FLUDARABINE [Suspect]
     Active Substance: FLUDARABINE PHOSPHATE
     Indication: PRODUCT USED FOR UNKNOWN INDICATION
     Dosage: UNK
     Route: 065
  4. MYCOPHENOLATE MOFETIL. [Suspect]
     Active Substance: MYCOPHENOLATE MOFETIL
     Indication: CHRONIC GRAFT VERSUS HOST DISEASE
     Dosage: UNK UNK, TID
     Route: 065
  5. IBRUTINIB [Suspect]
     Active Substance: IBRUTINIB
     Indication: CHRONIC GRAFT VERSUS HOST DISEASE
     Dosage: UNK
     Route: 065

REACTIONS (20)
  - Chronic myeloid leukaemia [Unknown]
  - Chronic kidney disease [Unknown]
  - Disease progression [Unknown]
  - Scleroderma [Unknown]
  - Pneumonia fungal [Unknown]
  - Acute graft versus host disease in skin [Unknown]
  - Acute kidney injury [Unknown]
  - Atrial fibrillation [Unknown]
  - Depression [Unknown]
  - Joint range of motion decreased [Unknown]
  - Post herpetic neuralgia [Unknown]
  - Cytomegalovirus infection reactivation [Recovered/Resolved]
  - Chronic graft versus host disease in skin [Unknown]
  - Acute graft versus host disease in liver [Unknown]
  - Herpes simplex [Unknown]
  - Hypertension [Unknown]
  - Acute graft versus host disease in intestine [Unknown]
  - Obesity [Unknown]
  - Cystitis haemorrhagic [Unknown]
  - Skin ulcer [Unknown]

NARRATIVE: CASE EVENT DATE: 20181105
